FAERS Safety Report 5856635-2 (Version None)
Quarter: 2008Q3

REPORT INFORMATION
  Report Type: 
  Country: None (occurrence: None)
  Receive Date: 20080822
  Receipt Date: 20080822
  Transmission Date: 20090109
  Serious: No
  Sender: FDA-Public Use
  Company Number: None

PATIENT
  Sex: Female
  Weight: 51.7101 kg

DRUGS (2)
  1. PHOSOMAX [Suspect]
     Indication: OSTEOPOROSIS PROPHYLAXIS
     Dosage: 1 TABLET 1 PER WEEK PO
     Route: 048
     Dates: start: 19980101, end: 20030101
  2. BONIVA [Suspect]
     Indication: OSTEOPOROSIS PROPHYLAXIS
     Dosage: 1 TABLET 1 PER MONTH PO
     Route: 048
     Dates: start: 20030101, end: 20080101

REACTIONS (1)
  - ARTHRALGIA [None]
